FAERS Safety Report 6683054-1 (Version None)
Quarter: 2010Q2

REPORT INFORMATION
  Report Type: 
  Country: None (occurrence: None)
  Receive Date: 20100415
  Receipt Date: 20100401
  Transmission Date: 20101027
  Serious: Yes (Hospitalization, Other)
  Sender: FDA-Public Use
  Company Number: PHHY2010FR02878

PATIENT
  Sex: Female

DRUGS (3)
  1. AFINITOR [Suspect]
     Indication: RENAL CANCER METASTATIC
     Dosage: 10 MG/DAY
     Route: 048
     Dates: start: 20091112, end: 20091224
  2. AFINITOR [Suspect]
     Dosage: 5 MG, QD
     Dates: start: 20100121
  3. LEVOTHYROX [Concomitant]
     Dosage: 125 UG, QD

REACTIONS (24)
  - ACUTE RESPIRATORY FAILURE [None]
  - ALVEOLITIS [None]
  - ANAEMIA [None]
  - BACTERIAL INFECTION [None]
  - BLOOD CREATININE INCREASED [None]
  - BLOOD OSMOLARITY DECREASED [None]
  - CANDIDIASIS [None]
  - CARDIAC FAILURE [None]
  - CARDIAC MURMUR [None]
  - DYSPNOEA [None]
  - HEPATOMEGALY [None]
  - HERPES SIMPLEX [None]
  - HYPOALBUMINAEMIA [None]
  - HYPONATRAEMIA [None]
  - INFECTION [None]
  - INFLAMMATION [None]
  - LUNG DISORDER [None]
  - METASTASES TO LIVER [None]
  - MUCOSAL DISCOLOURATION [None]
  - PLATELET COUNT INCREASED [None]
  - PYREXIA [None]
  - RENAL FAILURE [None]
  - SECRETION DISCHARGE [None]
  - SPEECH DISORDER [None]
